FAERS Safety Report 10507229 (Version 1)
Quarter: 2014Q4

REPORT INFORMATION
  Report Type: Spontaneous
  Country: US (occurrence: US)
  Receive Date: 20141009
  Receipt Date: 20141009
  Transmission Date: 20150528
  Serious: No
  Sender: FDA-Public Use
  Company Number: US-009507513-1409USA013223

PATIENT
  Age: 17 Year
  Sex: Female
  Weight: 104.31 kg

DRUGS (1)
  1. IMPLANON [Suspect]
     Active Substance: ETONOGESTREL
     Indication: CONTRACEPTION
     Dosage: 1 ROD/ 3YEARS, INSERTED LEFT ARM
     Route: 059
     Dates: start: 20110630

REACTIONS (3)
  - Incorrect drug administration duration [Unknown]
  - Anxiety [Unknown]
  - Urinary tract infection [Unknown]

NARRATIVE: CASE EVENT DATE: 20140701
